FAERS Safety Report 24759891 (Version 1)
Quarter: 2024Q4

REPORT INFORMATION
  Report Type: Report from Study
  Country: PR (occurrence: PR)
  Receive Date: 20241220
  Receipt Date: 20241220
  Transmission Date: 20250115
  Serious: Yes (Death)
  Sender: ABBVIE
  Company Number: PR-ABBVIE-6054493

PATIENT
  Age: 78 Year
  Sex: Male

DRUGS (4)
  1. VENCLEXTA [Suspect]
     Active Substance: VENETOCLAX
     Indication: Mantle cell lymphoma
     Route: 048
     Dates: start: 20240216
  2. ALLOPURINOL [Concomitant]
     Active Substance: ALLOPURINOL
     Indication: Product used for unknown indication
     Route: 048
  3. JAYPIRCA [Concomitant]
     Active Substance: PIRTOBRUTINIB
     Indication: Product used for unknown indication
     Route: 048
  4. METAMUCIL [Concomitant]
     Active Substance: PLANTAGO SEED
     Indication: Product used for unknown indication
     Dosage: WAFER
     Route: 048

REACTIONS (1)
  - Death [Fatal]

NARRATIVE: CASE EVENT DATE: 20241216
